FAERS Safety Report 7622166-2 (Version None)
Quarter: 2011Q3

REPORT INFORMATION
  Report Type: 
  Country: None (occurrence: None)
  Receive Date: 20110720
  Receipt Date: 20110426
  Transmission Date: 20111222
  Serious: Yes (Life-Threatening, Hospitalization, Other)
  Sender: FDA-Public Use
  Company Number: US-BAYER-2011-035957

PATIENT
  Age: 55 Year
  Sex: Female

DRUGS (2)
  1. LEXAPRO [Concomitant]
  2. AVELOX [Suspect]
     Indication: SINUSITIS
     Dosage: 400 MG, ONCE
     Dates: start: 20110401, end: 20110401

REACTIONS (4)
  - ANAPHYLACTIC REACTION [None]
  - DYSPNOEA [None]
  - HYPERHIDROSIS [None]
  - NASAL CONGESTION [None]
